FAERS Safety Report 11224569 (Version 1)
Quarter: 2015Q2

REPORT INFORMATION
  Report Type: Spontaneous
  Country: FR (occurrence: FR)
  Receive Date: 20150629
  Receipt Date: 20150629
  Transmission Date: 20150821
  Serious: Yes (Death, Other)
  Sender: FDA-Public Use
  Company Number: FR-ABBVIE-15K-056-1416656-00

PATIENT
  Age: 73 Year
  Sex: Female

DRUGS (1)
  1. HUMIRA [Suspect]
     Active Substance: ADALIMUMAB
     Indication: CROHN^S DISEASE
     Route: 058
     Dates: start: 201501

REACTIONS (8)
  - Diarrhoea [Unknown]
  - Dizziness [Unknown]
  - Disseminated tuberculosis [Fatal]
  - Intracranial pressure increased [Unknown]
  - Status epilepticus [Unknown]
  - Acute kidney injury [Unknown]
  - General physical health deterioration [Unknown]
  - Brain abscess [Unknown]

NARRATIVE: CASE EVENT DATE: 201501
